FAERS Safety Report 15483863 (Version 2)
Quarter: 2018Q4

REPORT INFORMATION
  Report Type: Report from Study
  Country: US (occurrence: US)
  Receive Date: 20181010
  Receipt Date: 20181016
  Transmission Date: 20190205
  Serious: Yes (Hospitalization)
  Sender: FDA-Public Use
  Company Number: US-SA-2018SA205869

PATIENT
  Age: 68 Year
  Sex: Female
  Weight: 47.62 kg

DRUGS (5)
  1. PREDNISONE. [Concomitant]
     Active Substance: PREDNISONE
     Indication: RASH
     Dosage: 10 MG, QD
     Dates: start: 201802
  2. ZYRTEC [Concomitant]
     Active Substance: CETIRIZINE HYDROCHLORIDE
     Indication: RASH
     Dosage: 10 MG, QD
     Dates: start: 201803
  3. DUPILUMAB [Suspect]
     Active Substance: DUPILUMAB
     Indication: DERMATITIS ATOPIC
     Dosage: 600 MG, 1X
     Route: 058
     Dates: start: 20180820, end: 20180820
  4. DUPILUMAB [Suspect]
     Active Substance: DUPILUMAB
     Dosage: 300 MG, QOW
     Route: 058
     Dates: start: 2018
  5. RALOXIFENE. [Concomitant]
     Active Substance: RALOXIFENE
     Indication: BLOOD OESTROGEN
     Dosage: 60 MG, QD

REACTIONS (6)
  - Swollen tongue [Recovered/Resolved]
  - Speech disorder [Not Recovered/Not Resolved]
  - Glossoptosis [Unknown]
  - Injection site erythema [Not Recovered/Not Resolved]
  - Ocular hyperaemia [Not Recovered/Not Resolved]
  - Dysarthria [Recovering/Resolving]

NARRATIVE: CASE EVENT DATE: 2018
